FAERS Safety Report 13786717 (Version 1)
Quarter: 2017Q3

REPORT INFORMATION
  Report Type: Spontaneous
  Country: US (occurrence: US)
  Receive Date: 20170725
  Receipt Date: 20170725
  Transmission Date: 20171127
  Serious: No
  Sender: FDA-Public Use
  Company Number: US-JNJFOC-20170613063

PATIENT
  Age: 86 Year
  Sex: Female
  Weight: 62.6 kg

DRUGS (2)
  1. TYLENOL REGULAR STRENGTH [Suspect]
     Active Substance: ACETAMINOPHEN
     Indication: ARTHRALGIA
     Dosage: 1-2 TABLET, 1X OR AS NEEDED
     Route: 048
  2. TYLENOL REGULAR STRENGTH [Suspect]
     Active Substance: ACETAMINOPHEN
     Indication: MUSCULOSKELETAL PAIN
     Dosage: 1-2 TABLET, 1X OR AS NEEDED
     Route: 048

REACTIONS (4)
  - Incorrect dose administered [Unknown]
  - Product use complaint [Unknown]
  - Product container issue [Unknown]
  - Wrong technique in product usage process [Unknown]
